FAERS Safety Report 7552282-5 (Version None)
Quarter: 2011Q2

REPORT INFORMATION
  Report Type: 
  Country: None (occurrence: None)
  Receive Date: 20110616
  Receipt Date: 20050111
  Transmission Date: 20111010
  Serious: Yes (Hospitalization, Other)
  Sender: FDA-Public Use
  Company Number: PHHO2004JP17282

PATIENT
  Sex: Female

DRUGS (4)
  1. ALDACTONE [Concomitant]
     Dosage: 25 MG, UNK
     Route: 048
     Dates: start: 20030625, end: 20030801
  2. PRERAN [Concomitant]
     Dosage: 1 MG, UNK
     Route: 048
     Dates: start: 20021221
  3. DIOVAN [Suspect]
     Indication: HYPERTENSION
     Route: 048
     Dates: start: 20030125, end: 20031225
  4. LASIX [Concomitant]
     Route: 048
     Dates: start: 20021221

REACTIONS (3)
  - UTERINE LEIOMYOMA [None]
  - DEEP VEIN THROMBOSIS [None]
  - PULMONARY EMBOLISM [None]
